FAERS Safety Report 4543499-2 (Version None)
Quarter: 2004Q4

REPORT INFORMATION
  Report Type: 
  Country: None (occurrence: None)
  Receive Date: 20041229
  Receipt Date: 20041229
  Transmission Date: 20050328
  Serious: Yes (Death)
  Sender: FDA-Public Use
  Company Number: None

PATIENT
  Age: 42 Year
  Sex: Male
  Weight: 118 kg

DRUGS (1)
  1. INTERFERON ALPHA   18 MILLION UNITS  2B [Suspect]
     Indication: RENAL CELL CARCINOMA STAGE UNSPECIFIED
     Dosage: 6 MILLION UN  DAILY SUBCUTANEOUS
     Route: 058
     Dates: start: 20041025, end: 20041108

REACTIONS (3)
  - DRUG TOXICITY [None]
  - GENERALISED OEDEMA [None]
  - RENAL FAILURE CHRONIC [None]
